FAERS Safety Report 23021699 (Version 2)
Quarter: 2023Q4

REPORT INFORMATION
  Report Type: Spontaneous
  Country: FR (occurrence: FR)
  Receive Date: 20231003
  Receipt Date: 20231220
  Transmission Date: 20240109
  Serious: Yes (Other)
  Sender: FDA-Public Use
  Company Number: FR-PFM-2023-05342

PATIENT
  Age: 75 Year
  Sex: Female

DRUGS (4)
  1. BRAFTOVI [Suspect]
     Active Substance: ENCORAFENIB
     Indication: Malignant melanoma stage IV
     Dosage: 6 DF DAILY IN THE EVENING
     Route: 048
     Dates: start: 20230825
  2. MEKTOVI [Suspect]
     Active Substance: BINIMETINIB
     Indication: Malignant melanoma stage IV
     Dosage: 3 DF, BID (2/DAY) MORNING AND EVENING
     Route: 048
     Dates: start: 20230825
  3. COSMETICS [Suspect]
     Active Substance: COSMETICS
     Indication: Prophylaxis
     Dosage: 1 DF PER DAY (AFTER SHOWER)
     Route: 061
     Dates: start: 202308, end: 20230919
  4. COSMETICS [Suspect]
     Active Substance: COSMETICS
     Indication: Prophylaxis
     Dosage: 1 DF PER DAY ( AFTER SHOWER)
     Route: 061
     Dates: start: 202308, end: 20230919

REACTIONS (6)
  - Fatigue [Recovering/Resolving]
  - Fall [Recovered/Resolved]
  - Hyperhidrosis [Recovering/Resolving]
  - Oral fungal infection [Recovering/Resolving]
  - Nausea [Not Recovered/Not Resolved]
  - Vomiting [Not Recovered/Not Resolved]

NARRATIVE: CASE EVENT DATE: 20230801
